FAERS Safety Report 4898347-8 (Version None)
Quarter: 2006Q1

REPORT INFORMATION
  Report Type: 
  Country: None (occurrence: None)
  Receive Date: 20060127
  Receipt Date: 20060118
  Transmission Date: 20060701
  Serious: Yes (Death, Other)
  Sender: FDA-Public Use
  Company Number: 163-20785-05120414

PATIENT
  Age: 62 Year
  Sex: Female

DRUGS (6)
  1. THALOMID [Suspect]
     Indication: MULTIPLE MYELOMA
     Dosage: 50 - 200 MG, DAILY, ORAL
     Route: 048
     Dates: start: 20031017, end: 20051101
  2. DEXAMETHASONE [Suspect]
     Dates: start: 20050101, end: 20051112
  3. AMBIEN [Concomitant]
  4. ZOLOFT [Concomitant]
  5. SYNTHROID [Concomitant]
  6. PROTONIX [Concomitant]

REACTIONS (9)
  - ASTHENIA [None]
  - CONDITION AGGRAVATED [None]
  - MULTIPLE MYELOMA [None]
  - MYOCARDIAL INFARCTION [None]
  - MYOPATHY STEROID [None]
  - STEM CELL TRANSPLANT [None]
  - SUDDEN CARDIAC DEATH [None]
  - TREMOR [None]
  - UPPER RESPIRATORY TRACT INFECTION [None]
